FAERS Safety Report 16382901 (Version 2)
Quarter: 2019Q2

REPORT INFORMATION
  Report Type: Spontaneous
  Country: US (occurrence: US)
  Receive Date: 20190603
  Receipt Date: 20190611
  Transmission Date: 20190711
  Serious: Yes (Other)
  Sender: FDA-Public Use
  Company Number: US-DRREDDYS-USA/USA/19/0110709

PATIENT
  Age: 61 Year
  Sex: Male

DRUGS (12)
  1. PROPOFOL INJECTABLE EMULSION [Concomitant]
     Active Substance: PROPOFOL
     Indication: PRODUCT USED FOR UNKNOWN INDICATION
  2. FENTANYL. [Concomitant]
     Active Substance: FENTANYL
     Indication: PRODUCT USED FOR UNKNOWN INDICATION
  3. VASOPRESSIN. [Concomitant]
     Active Substance: VASOPRESSIN
     Indication: PRODUCT USED FOR UNKNOWN INDICATION
  4. WARFARIN [Suspect]
     Active Substance: WARFARIN
     Indication: THROMBOSIS PROPHYLAXIS
     Dosage: THERAPY WAS RE-INITIATED ON POSTOPERATIVE DAY 2 AT DOSE OF 1 MG DAILY AND THEN TITRATED UP TO 5MG DA
     Route: 065
  5. BIVALIRUDIN INJECTION [Suspect]
     Active Substance: BIVALIRUDIN
     Indication: CARDIOPULMONARY BYPASS
     Dosage: HE WAS ADMINISTERED BIVALIRUDIN INFUSION AT THE RATE OF 0.015 MG/KG/H.
     Route: 040
  6. WARFARIN [Suspect]
     Active Substance: WARFARIN
     Dosage: WARFARIN THERAPY WAS RE-INITIATED ON POSTOPERATIVE DAY 2 AT A DOSE OF 1MG DAILY AND THEN TITRATED UP
  7. ISOFLURANE. [Concomitant]
     Active Substance: ISOFLURANE
     Indication: PRODUCT USED FOR UNKNOWN INDICATION
  8. EPINEPHRINE. [Concomitant]
     Active Substance: EPINEPHRINE
     Indication: PRODUCT USED FOR UNKNOWN INDICATION
  9. MIDAZOLAM [Concomitant]
     Active Substance: MIDAZOLAM HYDROCHLORIDE
     Indication: PRODUCT USED FOR UNKNOWN INDICATION
  10. PHENYLEPHRINE [Concomitant]
     Active Substance: PHENYLEPHRINE\PHENYLEPHRINE HYDROCHLORIDE
     Indication: PRODUCT USED FOR UNKNOWN INDICATION
  11. BIVALIRUDIN INJECTION [Suspect]
     Active Substance: BIVALIRUDIN
     Indication: ANTICOAGULANT THERAPY
     Dosage: HE WAS ADMINISTERED BOLUS BIVALIRUDIN 1.25 MG/KG 30 MINUTES PRIOR TO CPB. THIS WAS FOLLOWED BY BIVAL
     Route: 040
  12. ROCURONIUM [Concomitant]
     Active Substance: ROCURONIUM BROMIDE
     Indication: HYPOTONIA

REACTIONS (5)
  - Respiratory failure [Recovering/Resolving]
  - Sepsis [Recovering/Resolving]
  - Gastrointestinal haemorrhage [Recovered/Resolved]
  - Acute kidney injury [Recovering/Resolving]
  - Fluid overload [Recovering/Resolving]
